FAERS Safety Report 5167692-3 (Version None)
Quarter: 2006Q4

REPORT INFORMATION
  Report Type: 
  Country: None (occurrence: None)
  Receive Date: 20061201
  Receipt Date: 20061201
  Transmission Date: 20070319
  Serious: Yes (Hospitalization)
  Sender: FDA-Public Use
  Company Number: None

PATIENT
  Age: 14 Year
  Sex: Female

DRUGS (2)
  1. CARBAMAZEPINE [Suspect]
     Indication: GRAND MAL CONVULSION
     Dosage: PO
     Route: 048
  2. SEPTRA DS [Suspect]
     Indication: ACNE
     Dosage: 1 TAB BID PO
     Route: 048

REACTIONS (3)
  - ACNE [None]
  - CONDITION AGGRAVATED [None]
  - CONVULSION [None]
